FAERS Safety Report 5046987-8 (Version None)
Quarter: 2006Q2

REPORT INFORMATION
  Report Type: 
  Country: None (occurrence: None)
  Receive Date: 20060630
  Receipt Date: 20060623
  Transmission Date: 20061013
  Serious: Yes (Death)
  Sender: FDA-Public Use
  Company Number: 2006079181

PATIENT
  Sex: Male

DRUGS (4)
  1. VIAGRA [Suspect]
     Indication: ILL-DEFINED DISORDER
     Dosage: ORAL
     Route: 048
  2. CRATAEGUS (CRATAEGUS) [Concomitant]
  3. ALLOPURINOL [Concomitant]
  4. PROSTAGUTT FORTE               (SERENOA REPENS EXTRACT, URTICA EXTRACT [Concomitant]

REACTIONS (1)
  - AORTIC ANEURYSM RUPTURE [None]
